FAERS Safety Report 13419233 (Version 1)
Quarter: 2017Q2

REPORT INFORMATION
  Report Type: Spontaneous
  Country: US (occurrence: US)
  Receive Date: 20170407
  Receipt Date: 20170407
  Transmission Date: 20170830
  Serious: Yes (Hospitalization, Other)
  Sender: FDA-Public Use
  Company Number: US-ENDO PHARMACEUTICALS INC-2017-001640

PATIENT
  Age: 28 Year
  Sex: Female

DRUGS (1)
  1. ADRENALIN [Suspect]
     Active Substance: EPINEPHRINE
     Indication: PRODUCT USED FOR UNKNOWN INDICATION
     Dosage: 1 MG, UNKNOWN
     Route: 051

REACTIONS (9)
  - Suicide attempt [Unknown]
  - Pulmonary oedema [Unknown]
  - ECG signs of myocardial ischaemia [Unknown]
  - Hypotension [Unknown]
  - Intentional overdose [Unknown]
  - Hypertension [Unknown]
  - Troponin increased [Unknown]
  - Left ventricular dysfunction [Unknown]
  - Tachycardia [Unknown]
